FAERS Safety Report 6276126-7 (Version None)
Quarter: 2009Q3

REPORT INFORMATION
  Report Type: 
  Country: None (occurrence: None)
  Receive Date: 20090717
  Receipt Date: 20090717
  Transmission Date: 20100115
  Serious: No
  Sender: FDA-Public Use
  Company Number: None

PATIENT
  Sex: Male
  Weight: 77.1115 kg

DRUGS (2)
  1. SUTENT [Suspect]
     Indication: GASTROINTESTINAL STROMAL TUMOUR
     Dosage: 2 CAPSULE DAILY
     Dates: start: 20090101
  2. GLEEVEC [Concomitant]

REACTIONS (3)
  - ANXIETY [None]
  - DRY MOUTH [None]
  - SKIN DISCOLOURATION [None]
